FAERS Safety Report 9995595 (Version 1)
Quarter: 2014Q1

REPORT INFORMATION
  Report Type: Spontaneous
  Country: US (occurrence: None)
  Receive Date: 20140306
  Receipt Date: 20140306
  Transmission Date: 20141002
  Serious: Yes (Hospitalization)
  Sender: FDA-Public Use
  Company Number: UTC-043782

PATIENT
  Age: 52 Year
  Sex: Male
  Weight: 72.7 kg

DRUGS (1)
  1. TYVASO (6 MICROGRAM, AEROSOL FOR INHALATION) (TREPROSTINIL SODIUM) [Suspect]
     Indication: COR PULMONALE CHRONIC
     Dosage: 18-54 MCG (4 IN 1 D),INHALATION
     Route: 055
     Dates: start: 20131221

REACTIONS (3)
  - Haemoptysis [None]
  - Lymphadenopathy [None]
  - Cough [None]
